APPROVED DRUG PRODUCT: INDOMETHACIN
Active Ingredient: INDOMETHACIN
Strength: 25MG
Dosage Form/Route: CAPSULE;ORAL
Application: A071342 | Product #001
Applicant: TEVA PHARMACEUTICALS USA INC
Approved: Apr 18, 1988 | RLD: No | RS: No | Type: DISCN